FAERS Safety Report 12348080 (Version 1)
Quarter: 2016Q2

REPORT INFORMATION
  Report Type: Spontaneous
  Country: CA (occurrence: CA)
  Receive Date: 20160509
  Receipt Date: 20160509
  Transmission Date: 20160815
  Serious: Yes (Death, Hospitalization, Other)
  Sender: FDA-Public Use
  Company Number: CA-JNJFOC-20160504096

PATIENT
  Age: 73 Year
  Sex: Female
  Weight: 115 kg

DRUGS (6)
  1. XARELTO [Suspect]
     Active Substance: RIVAROXABAN
     Indication: PRODUCT USED FOR UNKNOWN INDICATION
     Route: 048
  2. DENOSUMAB [Suspect]
     Active Substance: DENOSUMAB
     Indication: OSTEOPOROSIS POSTMENOPAUSAL
     Dosage: 60 MG, 1 EVERY 6 MONTHS
     Route: 058
  3. MICARDIS [Concomitant]
     Active Substance: TELMISARTAN
     Indication: HYPERTENSION
     Route: 065
  4. LORAZEPAM. [Concomitant]
     Active Substance: LORAZEPAM
     Indication: ANXIETY
     Dosage: 1 MG, UNK
     Route: 065
  5. RANITIDINE. [Concomitant]
     Active Substance: RANITIDINE
     Indication: GASTROOESOPHAGEAL REFLUX DISEASE
     Dosage: 150 MG, BID
     Route: 065
  6. ELTROXIN [Concomitant]
     Active Substance: LEVOTHYROXINE
     Indication: HYPOTHYROIDISM
     Dosage: 10 MG, UNK
     Route: 065

REACTIONS (22)
  - Deep vein thrombosis [Fatal]
  - Pulmonary embolism [Fatal]
  - Septic shock [Unknown]
  - Troponin increased [Unknown]
  - Asthenia [Unknown]
  - Urine output decreased [Unknown]
  - Gastrointestinal haemorrhage [Unknown]
  - Gallbladder disorder [Unknown]
  - Melaena [Unknown]
  - Lymphoma [Unknown]
  - Haemoglobin decreased [Unknown]
  - Hepatic cyst [Unknown]
  - Renal impairment [Fatal]
  - Back pain [Unknown]
  - Dyspnoea [Unknown]
  - Pyelonephritis [Unknown]
  - Body temperature increased [Unknown]
  - Chest pain [Unknown]
  - Hypotension [Unknown]
  - Pallor [Unknown]
  - White blood cell count increased [Unknown]
  - Urinary tract infection [Unknown]
